FAERS Safety Report 16920895 (Version 2)
Quarter: 2019Q4

REPORT INFORMATION
  Report Type: Spontaneous
  Country: US (occurrence: US)
  Receive Date: 20191015
  Receipt Date: 20191015
  Transmission Date: 20200122
  Serious: No
  Sender: FDA-Public Use
  Company Number: US-BAUSCH-BL-2019-055793

PATIENT
  Age: 44 Year
  Sex: Female

DRUGS (3)
  1. APRISO [Suspect]
     Active Substance: MESALAMINE
     Indication: PRODUCT USE IN UNAPPROVED INDICATION
  2. APRISO [Suspect]
     Active Substance: MESALAMINE
     Indication: BILIARY DYSKINESIA
     Route: 048
     Dates: start: 201906, end: 20190923
  3. APRISO [Suspect]
     Active Substance: MESALAMINE
     Indication: SPHINCTER OF ODDI DYSFUNCTION

REACTIONS (3)
  - Therapy cessation [Unknown]
  - Product use in unapproved indication [Unknown]
  - Arthralgia [Unknown]

NARRATIVE: CASE EVENT DATE: 201906
